FAERS Safety Report 7610535-6 (Version None)
Quarter: 2011Q3

REPORT INFORMATION
  Report Type: 
  Country: None (occurrence: None)
  Receive Date: 20110715
  Receipt Date: 20110705
  Transmission Date: 20111222
  Serious: Yes (Other)
  Sender: FDA-Public Use
  Company Number: NL-AMGEN-NLDSP2011034689

PATIENT
  Age: 77 Year
  Sex: Male

DRUGS (8)
  1. ENBREL [Suspect]
     Indication: RHEUMATOID ARTHRITIS
     Dosage: 50 MG, WEEKLY
  2. ATROVENT [Concomitant]
     Dosage: UNK
  3. ASCAL                              /00002702/ [Concomitant]
     Dosage: UNK
  4. VERAPAMIL [Concomitant]
     Dosage: UNK
  5. OMEPRAZOLE [Concomitant]
     Dosage: UNK
  6. NIFEDIPINE [Concomitant]
     Dosage: UNK
  7. LACTULOSE [Concomitant]
     Dosage: UNK
  8. FLUTIDE NASETTEN [Concomitant]
     Dosage: UNK

REACTIONS (2)
  - CATARACT [None]
  - RESPIRATORY TRACT INFECTION [None]
